FAERS Safety Report 9276487 (Version 2)
Quarter: 2013Q2

REPORT INFORMATION
  Report Type: Spontaneous
  Country: US (occurrence: US)
  Receive Date: 20130507
  Receipt Date: 20130516
  Transmission Date: 20140414
  Serious: Yes (Other)
  Sender: FDA-Public Use
  Company Number: US-BRISTOL-MYERS SQUIBB COMPANY-18844753

PATIENT
  Age: 84 Year
  Sex: Male
  Weight: 101.13 kg

DRUGS (16)
  1. BYDUREON [Suspect]
     Indication: DIABETES MELLITUS
     Route: 058
     Dates: start: 20130419, end: 20130420
  2. BYETTA [Suspect]
     Route: 058
  3. ASPIRIN [Concomitant]
  4. FISH OIL [Concomitant]
     Dosage: 500MG 2 QD
  5. LOPRESSOR [Concomitant]
  6. LISINOPRIL [Concomitant]
  7. PRAVACHOL [Concomitant]
  8. LASIX [Concomitant]
  9. KCL RETARD [Concomitant]
  10. GLIMEPIRIDE [Concomitant]
  11. VITAMIN [Concomitant]
  12. VITAMIN B12 [Concomitant]
  13. VITAMIN D3 [Concomitant]
     Dosage: 2000UNITS QD
  14. HYDROCODONE [Concomitant]
  15. FUROSEMIDE [Concomitant]
  16. POTASSIUM [Concomitant]

REACTIONS (5)
  - Joint swelling [Not Recovered/Not Resolved]
  - Erythema [Not Recovered/Not Resolved]
  - Oedema peripheral [Not Recovered/Not Resolved]
  - Gait disturbance [Not Recovered/Not Resolved]
  - Fatigue [Unknown]
